FAERS Safety Report 6425619-8 (Version None)
Quarter: 2009Q4

REPORT INFORMATION
  Report Type: 
  Country: None (occurrence: None)
  Receive Date: 20091016
  Receipt Date: 20090827
  Transmission Date: 20100525
  Serious: Yes (Hospitalization, Other)
  Sender: FDA-Public Use
  Company Number: 86535

PATIENT
  Sex: Female

DRUGS (1)
  1. LEUCOVORIN CALCIUM [Suspect]

REACTIONS (2)
  - ABDOMINAL DISCOMFORT [None]
  - LABORATORY TEST ABNORMAL [None]
